FAERS Safety Report 17418202 (Version 1)
Quarter: 2020Q1

REPORT INFORMATION
  Report Type: Spontaneous
  Country: US (occurrence: US)
  Receive Date: 20200214
  Receipt Date: 20200214
  Transmission Date: 20200409
  Serious: No
  Sender: FDA-Public Use
  Company Number: US-ASTRAZENECA-2020SE19376

PATIENT
  Age: 484 Month
  Sex: Female

DRUGS (1)
  1. ZOMIG [Suspect]
     Active Substance: ZOLMITRIPTAN
     Indication: MIGRAINE
     Dosage: 1 SPRAY IN 1 NOSTRIL AT ONSET OF MIGRAINE. MAY REPEAT IN 2 HOURS IF NEEDED
     Route: 045

REACTIONS (2)
  - Product dose omission [Unknown]
  - Migraine [Unknown]

NARRATIVE: CASE EVENT DATE: 201912
